FAERS Safety Report 9378871 (Version 1)
Quarter: 2013Q3

REPORT INFORMATION
  Report Type: Spontaneous
  Country: US (occurrence: US)
  Receive Date: 20130702
  Receipt Date: 20130702
  Transmission Date: 20140515
  Serious: No
  Sender: FDA-Public Use
  Company Number: US-PFIZER INC-2013194400

PATIENT
  Age: 43 Year
  Sex: Female
  Weight: 61.68 kg

DRUGS (2)
  1. PANTOPRAZOLE [Suspect]
     Indication: GASTROOESOPHAGEAL REFLUX DISEASE
     Dosage: 40 MG, 1X/DAY
     Route: 048
     Dates: start: 20130626
  2. PANTOPRAZOLE [Suspect]
     Indication: DYSPEPSIA

REACTIONS (2)
  - Heart rate increased [Unknown]
  - Insomnia [Unknown]
